FAERS Safety Report 6881022-8 (Version None)
Quarter: 2010Q3

REPORT INFORMATION
  Report Type: 
  Country: None (occurrence: None)
  Receive Date: 20100727
  Receipt Date: 20100720
  Transmission Date: 20110219
  Serious: Yes (Other)
  Sender: FDA-Public Use
  Company Number: US-BIOGENIDEC-2010BI024577

PATIENT
  Age: 40 Year
  Sex: Female

DRUGS (3)
  1. TYSABRI [Suspect]
     Indication: MULTIPLE SCLEROSIS
     Route: 042
     Dates: start: 20071026, end: 20080814
  2. TYSABRI [Suspect]
     Route: 042
     Dates: start: 20090527, end: 20091001
  3. TYSABRI [Suspect]
     Route: 042
     Dates: start: 20100601

REACTIONS (1)
  - SPINAL HAEMATOMA [None]
